FAERS Safety Report 6157475-X (Version None)
Quarter: 2009Q2

REPORT INFORMATION
  Report Type: 
  Country: None (occurrence: None)
  Receive Date: 20090416
  Receipt Date: 20090408
  Transmission Date: 20091009
  Serious: Yes (Hospitalization)
  Sender: FDA-Public Use
  Company Number: PHHO2009GB04150

PATIENT

DRUGS (11)
  1. RAD 666 RAD+TAB+PTR [Suspect]
     Indication: HEART TRANSPLANT
     Dosage: UNK
     Route: 048
     Dates: start: 20070414, end: 20090320
  2. MYFORTIC [Suspect]
     Indication: TRANSPLANT
  3. AMLODIPINE [Concomitant]
  4. CALCICHEW [Concomitant]
  5. CARVEDILOL [Concomitant]
  6. COTRIMOXAZOL ^ALIUD^ [Concomitant]
  7. FERROUS SULFATE TAB [Concomitant]
  8. OMEPRAZOLE [Concomitant]
  9. PRAVASTATIN [Concomitant]
  10. QUININE SULPHATE [Concomitant]
  11. RISEDRONATE SODIUM [Concomitant]

REACTIONS (10)
  - CARDIAC DISORDER [None]
  - CATHETERISATION CARDIAC [None]
  - DEEP VEIN THROMBOSIS [None]
  - DISEASE PROGRESSION [None]
  - DYSPNOEA [None]
  - FLUID OVERLOAD [None]
  - IMMUNOSUPPRESSANT DRUG LEVEL INCREASED [None]
  - PERICARDIAL EXCISION [None]
  - PERICARDITIS CONSTRICTIVE [None]
  - RENAL IMPAIRMENT [None]
